FAERS Safety Report 6773571-8 (Version None)
Quarter: 2010Q2

REPORT INFORMATION
  Report Type: 
  Country: None (occurrence: None)
  Receive Date: 20100611
  Receipt Date: 20100607
  Transmission Date: 20101027
  Serious: Yes (Hospitalization)
  Sender: FDA-Public Use
  Company Number: 2010SP025569

PATIENT
  Age: 45 Year
  Sex: Male
  Weight: 93.3049 kg

DRUGS (18)
  1. TEMODAR [Suspect]
     Indication: DISEASE RECURRENCE
     Dosage: 100 MG; QD; PO, 100 MG/M2; QD; PO
     Route: 048
     Dates: start: 20100309, end: 20100329
  2. TEMODAR [Suspect]
     Indication: GLIOBLASTOMA MULTIFORME
     Dosage: 100 MG; QD; PO, 100 MG/M2; QD; PO
     Route: 048
     Dates: start: 20100309, end: 20100329
  3. TEMODAR [Suspect]
     Indication: DISEASE RECURRENCE
     Dosage: 100 MG; QD; PO, 100 MG/M2; QD; PO
     Route: 048
     Dates: start: 20100406, end: 20100426
  4. TEMODAR [Suspect]
     Indication: GLIOBLASTOMA MULTIFORME
     Dosage: 100 MG; QD; PO, 100 MG/M2; QD; PO
     Route: 048
     Dates: start: 20100406, end: 20100426
  5. TEMODAR [Suspect]
     Indication: DISEASE RECURRENCE
     Dosage: 100 MG; QD; PO, 100 MG/M2; QD; PO
     Route: 048
     Dates: start: 20100512, end: 20100601
  6. TEMODAR [Suspect]
     Indication: GLIOBLASTOMA MULTIFORME
     Dosage: 100 MG; QD; PO, 100 MG/M2; QD; PO
     Route: 048
     Dates: start: 20100512, end: 20100601
  7. BACTRIM [Concomitant]
  8. DEXAMETHASONE [Concomitant]
  9. ZOFRAN [Concomitant]
  10. TYLENOL [Concomitant]
  11. PROPRANOLOL [Concomitant]
  12. OMEPRAZOLE [Concomitant]
  13. NYSTATIN [Concomitant]
  14. NORTRIPTYLINE [Concomitant]
  15. KEPPRA [Concomitant]
  16. COLACE [Concomitant]
  17. ATIVAN [Concomitant]
  18. RITALIN [Concomitant]

REACTIONS (28)
  - ABDOMINAL DISTENSION [None]
  - ALANINE AMINOTRANSFERASE INCREASED [None]
  - ASPARTATE AMINOTRANSFERASE INCREASED [None]
  - BACK PAIN [None]
  - BLOOD GLUCOSE INCREASED [None]
  - BRAIN OEDEMA [None]
  - CHOLELITHIASIS [None]
  - DECREASED APPETITE [None]
  - DIARRHOEA [None]
  - ELECTROCARDIOGRAM QT PROLONGED [None]
  - GASTROINTESTINAL INFLAMMATION [None]
  - HEADACHE [None]
  - HEPATIC STEATOSIS [None]
  - HYPERGLYCAEMIA [None]
  - HYPOKALAEMIA [None]
  - INGUINAL HERNIA [None]
  - LUNG NEOPLASM [None]
  - MICROCYTIC ANAEMIA [None]
  - NAUSEA [None]
  - NO THERAPEUTIC RESPONSE [None]
  - ORAL CANDIDIASIS [None]
  - PAIN [None]
  - PULMONARY EMBOLISM [None]
  - PULMONARY INFARCTION [None]
  - PYREXIA [None]
  - SINUS TACHYCARDIA [None]
  - TENDERNESS [None]
  - VOMITING [None]
